FAERS Safety Report 6425166-3 (Version None)
Quarter: 2009Q4

REPORT INFORMATION
  Report Type: 
  Country: None (occurrence: None)
  Receive Date: 20091102
  Receipt Date: 20091102
  Transmission Date: 20100525
  Serious: Yes (Hospitalization)
  Sender: FDA-Public Use
  Company Number: None

PATIENT
  Age: 60 Year
  Sex: Female
  Weight: 113 kg

DRUGS (1)
  1. VANCOMYCIN [Suspect]
     Indication: CELLULITIS
     Dosage: 1 GM BID IV
     Route: 042
     Dates: start: 20090728, end: 20090802

REACTIONS (3)
  - DERMATITIS BULLOUS [None]
  - DRUG ERUPTION [None]
  - SKIN EXFOLIATION [None]
